FAERS Safety Report 5266562-X (Version None)
Quarter: 2007Q1

REPORT INFORMATION
  Report Type: 
  Country: None (occurrence: None)
  Receive Date: 20070315
  Receipt Date: 20060515
  Transmission Date: 20070707
  Serious: Yes (Death, Disabling)
  Sender: FDA-Public Use
  Company Number: ZW-BOEHRINGER INGELHEIM GMBH, GERMANY-2006-UK-01519UK

PATIENT
  Sex: Male

DRUGS (4)
  1. NEVIRAPINE [Suspect]
     Dates: start: 20051006, end: 20051019
  2. KALETRA [Suspect]
     Dates: end: 20051026
  3. LAMIVUDINE [Suspect]
     Dates: end: 20051026
  4. FLUCONAZOLE [Concomitant]

REACTIONS (2)
  - HEPATOTOXICITY [None]
  - HIV WASTING SYNDROME [None]
